FAERS Safety Report 7460769-9 (Version None)
Quarter: 2011Q2

REPORT INFORMATION
  Report Type: 
  Country: None (occurrence: None)
  Receive Date: 20110505
  Receipt Date: 20110425
  Transmission Date: 20111010
  Serious: Yes (Other)
  Sender: FDA-Public Use
  Company Number: PHHY2011JP36361

PATIENT
  Sex: Male

DRUGS (16)
  1. AFINITOR [Suspect]
     Dosage: 10 MG, UNK
     Route: 048
     Dates: start: 20110226
  2. AFINITOR [Suspect]
     Indication: METASTATIC RENAL CELL CARCINOMA
     Dosage: 10 MG, UNK
     Route: 048
     Dates: start: 20101214, end: 20110202
  3. BETAMETHASONE [Concomitant]
     Indication: ERYTHEMA NODOSUM
     Dosage: 1 MG, UNK
     Dates: start: 20101214, end: 20110225
  4. BETAMETHASONE [Concomitant]
     Dosage: 0.5 MG, UNK
     Route: 048
  5. SORAFENIB TOSILATE [Concomitant]
     Dosage: 400 MG, UNK
     Route: 048
     Dates: start: 20100820, end: 20101118
  6. BETAMETHASONE [Concomitant]
     Dosage: 1.5 MG, UNK
     Route: 048
  7. DORNER [Concomitant]
     Indication: ERYTHEMA NODOSUM
     Dosage: 60 UG, UNK
     Route: 048
     Dates: start: 20101214, end: 20101220
  8. GASLON [Concomitant]
     Indication: PROPHYLAXIS
     Dosage: 4 MG, UNK
     Route: 048
     Dates: start: 20110111, end: 20110222
  9. INTERFERON ALFA [Concomitant]
     Indication: METASTATIC RENAL CELL CARCINOMA
     Dosage: 5000000 IU, UNK
     Dates: start: 20100105, end: 20100608
  10. CLARITH [Concomitant]
     Indication: ERYTHEMA NODOSUM
     Dosage: 200 MG, UNK
     Route: 048
     Dates: start: 20101214, end: 20110227
  11. GOSHAJINKIGAN [Concomitant]
     Indication: ERYTHEMA NODOSUM
     Dosage: 7.5 G, UNK
     Route: 048
     Dates: start: 20101214, end: 20101220
  12. BETAMETHASONE [Concomitant]
     Dosage: 1 MG, UNK
     Route: 048
  13. COLCHICINE [Concomitant]
  14. AFINITOR [Suspect]
     Dosage: 5 MG, UNK
     Route: 048
     Dates: start: 20110216, end: 20110225
  15. DASEN [Concomitant]
     Indication: ERYTHEMA NODOSUM
     Dosage: 30 MG, UNK
     Route: 048
     Dates: start: 20101214, end: 20101220
  16. ATELEC [Concomitant]
     Indication: HYPERTENSION
     Dosage: 10 MG, UNK
     Route: 048
     Dates: start: 20101214

REACTIONS (4)
  - DYSGEUSIA [None]
  - HYPERGLYCAEMIA [None]
  - TONGUE DISORDER [None]
  - EPISTAXIS [None]
